FAERS Safety Report 4426059-3 (Version None)
Quarter: 2004Q3

REPORT INFORMATION
  Report Type: 
  Country: None (occurrence: None)
  Receive Date: 20040811
  Receipt Date: 20040726
  Transmission Date: 20050211
  Serious: No
  Sender: FDA-Public Use
  Company Number: 2004GB01825

PATIENT
  Age: 81 Year
  Sex: Female
  Weight: 104 kg

DRUGS (2)
  1. LIDOCAINE [Suspect]
  2. BUMETADINE [Concomitant]

REACTIONS (3)
  - BLISTER [None]
  - INFLAMMATION [None]
  - VULVAL DISORDER [None]
